FAERS Safety Report 20517066 (Version 1)
Quarter: 2022Q1

REPORT INFORMATION
  Report Type: Spontaneous
  Country: CN (occurrence: CN)
  Receive Date: 20220225
  Receipt Date: 20220225
  Transmission Date: 20220423
  Serious: Yes (Other)
  Sender: FDA-Public Use
  Company Number: CN-SUN PHARMACEUTICAL INDUSTRIES LTD-2022R1-327668

PATIENT
  Sex: Male
  Weight: 65 kg

DRUGS (1)
  1. BICALUTAMIDE [Suspect]
     Active Substance: BICALUTAMIDE
     Indication: Symptomatic treatment
     Dosage: 50 MILLIGRAM, QD
     Route: 065
     Dates: start: 20220101, end: 20220114

REACTIONS (1)
  - Electrocardiogram QT prolonged [Recovering/Resolving]
